FAERS Safety Report 16287153 (Version 1)
Quarter: 2019Q2

REPORT INFORMATION
  Report Type: Spontaneous
  Country: US (occurrence: US)
  Receive Date: 20190508
  Receipt Date: 20190508
  Transmission Date: 20190711
  Serious: No
  Sender: FDA-Public Use
  Company Number: US-AMREGENT-20190662

PATIENT

DRUGS (1)
  1. CYANOCOBALAMIN INJECTION, USP (0130-05) [Suspect]
     Active Substance: CYANOCOBALAMIN
     Dosage: UNKNOWN
     Route: 065

REACTIONS (2)
  - Injection site pain [Recovered/Resolved]
  - Injection site warmth [Recovered/Resolved]
